FAERS Safety Report 6316256-4 (Version None)
Quarter: 2009Q3

REPORT INFORMATION
  Report Type: 
  Country: None (occurrence: None)
  Receive Date: 20090820
  Receipt Date: 20090812
  Transmission Date: 20100115
  Serious: Yes (Hospitalization)
  Sender: FDA-Public Use
  Company Number: FR-CELGENEUS-056-50794-09080824

PATIENT
  Sex: Male
  Weight: 70 kg

DRUGS (6)
  1. VIDAZA [Suspect]
     Route: 058
     Dates: start: 20090706, end: 20090710
  2. VIDAZA [Suspect]
     Route: 058
     Dates: start: 20090817
  3. SKENAN [Concomitant]
     Indication: DRUG USE FOR UNKNOWN INDICATION
     Route: 048
  4. EXJADE [Concomitant]
     Indication: DRUG USE FOR UNKNOWN INDICATION
     Route: 048
     Dates: start: 20090608, end: 20090807
  5. COLCHIMAX [Concomitant]
     Indication: DRUG USE FOR UNKNOWN INDICATION
     Route: 048
     Dates: start: 20090710, end: 20090807
  6. IMOVANE [Concomitant]
     Indication: DRUG USE FOR UNKNOWN INDICATION
     Route: 048
     Dates: start: 20090710, end: 20090807

REACTIONS (1)
  - FEBRILE BONE MARROW APLASIA [None]
